FAERS Safety Report 5280775-2 (Version None)
Quarter: 2007Q1

REPORT INFORMATION
  Report Type: 
  Country: None (occurrence: None)
  Receive Date: 20070329
  Receipt Date: 20070319
  Transmission Date: 20070707
  Serious: Yes (Other)
  Sender: FDA-Public Use
  Company Number: DE-PFIZER INC-2007021425

PATIENT
  Age: 68 Year
  Sex: Male

DRUGS (6)
  1. NIFEDIPINE [Suspect]
     Indication: HYPERTENSION
  2. NIFEDIPINE [Interacting]
  3. OLANZAPINE [Suspect]
     Indication: SCHIZOPHRENIA
     Dosage: DAILY DOSE:40MG
  4. OLANZAPINE [Interacting]
     Dosage: DAILY DOSE:25MG
  5. METIXENE HYDROCHLORIDE [Suspect]
     Indication: HYPERKINESIA
  6. METIXENE HYDROCHLORIDE [Interacting]
     Indication: TREMOR

REACTIONS (2)
  - DRUG INTERACTION [None]
  - NEUTROPENIA [None]
